FAERS Safety Report 22179962 (Version 1)
Quarter: 2023Q2

REPORT INFORMATION
  Report Type: Spontaneous
  Country: US (occurrence: US)
  Receive Date: 20230406
  Receipt Date: 20230406
  Transmission Date: 20230721
  Serious: No
  Sender: FDA-Public Use
  Company Number: US-GSKCCFUS-Case-01664299_AE-93942

PATIENT
  Sex: Male

DRUGS (6)
  1. FLOVENT HFA [Suspect]
     Active Substance: FLUTICASONE PROPIONATE
     Indication: COVID-19 pneumonia
     Dosage: UNK UNK, BID
  2. FLOVENT HFA [Suspect]
     Active Substance: FLUTICASONE PROPIONATE
     Indication: COVID-19 pneumonia
     Dosage: UNK UNK, BID
  3. FLOVENT HFA [Suspect]
     Active Substance: FLUTICASONE PROPIONATE
  4. FLOVENT HFA [Suspect]
     Active Substance: FLUTICASONE PROPIONATE
     Indication: COVID-19 pneumonia
     Dosage: UNK UNK, BID
  5. FLOVENT HFA [Suspect]
     Active Substance: FLUTICASONE PROPIONATE
  6. FLOVENT HFA [Suspect]
     Active Substance: FLUTICASONE PROPIONATE

REACTIONS (5)
  - Blood glucose increased [Unknown]
  - Wrong technique in device usage process [Unknown]
  - Wrong technique in product usage process [Unknown]
  - Product use in unapproved indication [Unknown]
  - Product dose omission issue [Unknown]
